FAERS Safety Report 4682780-3 (Version None)
Quarter: 2005Q2

REPORT INFORMATION
  Report Type: 
  Country: None (occurrence: None)
  Receive Date: 20050602
  Receipt Date: 20050420
  Transmission Date: 20051028
  Serious: No
  Sender: FDA-Public Use
  Company Number: USA050496131

PATIENT
  Sex: Female

DRUGS (6)
  1. CYMBALTA [Suspect]
     Indication: DEPRESSION
     Dosage: 60 MG
     Dates: start: 20050301
  2. FLUOXETINE [Concomitant]
  3. TRAZADONE [Concomitant]
  4. ACETAMINOPHEN AND HYDROCODONE BITARTRATE [Concomitant]
  5. OXYCODONE HCL [Concomitant]
  6. AMBIEN [Concomitant]

REACTIONS (5)
  - AFFECT LABILITY [None]
  - AGITATION [None]
  - EMOTIONAL DISORDER [None]
  - INSOMNIA [None]
  - IRRITABILITY [None]
